FAERS Safety Report 8395112-4 (Version None)
Quarter: 2012Q2

REPORT INFORMATION
  Report Type: 
  Country: None (occurrence: None)
  Receive Date: 20120530
  Receipt Date: 20120518
  Transmission Date: 20120825
  Serious: Yes (Death, Other)
  Sender: FDA-Public Use
  Company Number: IT-PFIZER INC-2007062206

PATIENT
  Age: 85 Year
  Sex: Female

DRUGS (5)
  1. NEURONTIN [Suspect]
     Indication: DIABETIC NEUROPATHY
     Dosage: 150 MG, 3X/DAY
     Dates: start: 20061005, end: 20061009
  2. ASPIRIN [Concomitant]
     Indication: THROMBOSIS PROPHYLAXIS
     Dosage: 100 MG/DAY
     Route: 048
  3. HUMALOG [Concomitant]
     Indication: DIABETES MELLITUS
     Dosage: 18 IU
     Route: 058
  4. RAMIPRIL [Concomitant]
     Indication: HYPERTENSION
  5. DILTIAZEM [Concomitant]
     Dosage: 60 MG/DAY
     Route: 048

REACTIONS (13)
  - RESPIRATORY FAILURE [None]
  - RENAL FAILURE ACUTE [None]
  - RHABDOMYOLYSIS [None]
  - BLOOD CREATINE PHOSPHOKINASE MB INCREASED [None]
  - MYOPATHY [None]
  - DYSPNOEA [None]
  - MYOGLOBIN BLOOD INCREASED [None]
  - PSYCHOMOTOR HYPERACTIVITY [None]
  - PAIN [None]
  - BLOOD CREATINE PHOSPHOKINASE INCREASED [None]
  - OXYGEN SATURATION DECREASED [None]
  - PULMONARY CONGESTION [None]
  - ABDOMINAL PAIN UPPER [None]
